FAERS Safety Report 4769961-5 (Version None)
Quarter: 2005Q3

REPORT INFORMATION
  Report Type: 
  Country: None (occurrence: None)
  Receive Date: 20050914
  Receipt Date: 20050914
  Transmission Date: 20060218
  Serious: Yes (Life-Threatening)
  Sender: FDA-Public Use
  Company Number: None

PATIENT
  Age: 74 Year
  Sex: Male
  Weight: 75 kg

DRUGS (10)
  1. FLUOROURACIL [Suspect]
     Indication: METASTATIC NEOPLASM
     Dosage: 1860 MG IV X 24 HOUR INFUSION
     Route: 042
     Dates: start: 20050906, end: 20050908
  2. GLIPIZIDE [Concomitant]
  3. APREPITANT [Concomitant]
  4. CISPLATIN [Concomitant]
  5. BUPROPRION HCL [Concomitant]
  6. GALACTAMINE [Concomitant]
  7. GRANISETRON [Concomitant]
  8. PANTOPRAZOLE [Concomitant]
  9. QUINAPRIL [Concomitant]
  10. SIMVASTATIN [Concomitant]

REACTIONS (4)
  - ACUTE MYOCARDIAL INFARCTION [None]
  - DYSPNOEA [None]
  - INFUSION RELATED REACTION [None]
  - OXYGEN SATURATION DECREASED [None]
